FAERS Safety Report 6667660-6 (Version None)
Quarter: 2010Q2

REPORT INFORMATION
  Report Type: 
  Country: None (occurrence: None)
  Receive Date: 20100405
  Receipt Date: 20100401
  Transmission Date: 20101027
  Serious: Yes (Hospitalization, Other)
  Sender: FDA-Public Use
  Company Number: B0642619A

PATIENT
  Sex: Female

DRUGS (11)
  1. ZINNAT [Suspect]
     Indication: OSTEITIS
     Route: 048
     Dates: start: 20091213, end: 20100112
  2. TARGOCID [Suspect]
     Indication: OSTEITIS
     Route: 048
     Dates: start: 20091213, end: 20100112
  3. PREVISCAN [Concomitant]
     Route: 065
  4. MICARDIS [Concomitant]
     Route: 065
  5. CACIT D3 [Concomitant]
     Route: 065
  6. VASTAREL [Concomitant]
     Route: 065
  7. OMEPRAZOLE [Concomitant]
     Route: 065
  8. SERESTA [Concomitant]
     Route: 065
  9. SKENAN [Concomitant]
     Route: 065
  10. DEDROGYL [Concomitant]
     Route: 065
     Dates: start: 20091228
  11. LASIX [Concomitant]
     Route: 065
     Dates: start: 20091228

REACTIONS (6)
  - DIARRHOEA [None]
  - HYPERKALAEMIA [None]
  - HYPONATRAEMIA [None]
  - PYREXIA [None]
  - RENAL FAILURE ACUTE [None]
  - VOMITING [None]
